FAERS Safety Report 23997509 (Version 1)
Quarter: 2024Q2

REPORT INFORMATION
  Report Type: Spontaneous
  Country: US (occurrence: US)
  Receive Date: 20240621
  Receipt Date: 20240621
  Transmission Date: 20240715
  Serious: No
  Sender: FDA-Public Use
  Company Number: US-BRAEBURN-US-BRA-24-000411

PATIENT
  Age: 48 Year
  Sex: Female
  Weight: 50.431 kg

DRUGS (1)
  1. BRIXADI [Suspect]
     Active Substance: BUPRENORPHINE
     Indication: Product used for unknown indication
     Dosage: 64 MILLIGRAM, MONTHLY
     Route: 058
     Dates: start: 20231109, end: 20240501

REACTIONS (2)
  - Injection site irritation [Recovered/Resolved]
  - Injection site pain [Recovered/Resolved]

NARRATIVE: CASE EVENT DATE: 20240501
